FAERS Safety Report 8543310-9 (Version None)
Quarter: 2012Q3

REPORT INFORMATION
  Report Type: 
  Country: None (occurrence: None)
  Receive Date: 20120727
  Receipt Date: 20120712
  Transmission Date: 20120928
  Serious: Yes (Hospitalization)
  Sender: FDA-Public Use
  Company Number: GB-009507513-1207GBR009144

PATIENT

DRUGS (1)
  1. IMPLANON [Suspect]
     Indication: CONTRACEPTION
     Dosage: UNK
     Route: 059
     Dates: start: 20090101

REACTIONS (5)
  - DRUG ADMINISTRATION ERROR [None]
  - NEUROPATHY PERIPHERAL [None]
  - PAIN [None]
  - HYPOAESTHESIA [None]
  - PARAESTHESIA [None]
